FAERS Safety Report 7693668-8 (Version None)
Quarter: 2011Q3

REPORT INFORMATION
  Report Type: 
  Country: None (occurrence: None)
  Receive Date: 20110819
  Receipt Date: 20110809
  Transmission Date: 20111222
  Serious: Yes (Hospitalization, Other)
  Sender: FDA-Public Use
  Company Number: US-BAXTER-2011BH025926

PATIENT
  Sex: Female

DRUGS (1)
  1. DIANEAL [Suspect]
     Indication: PERITONEAL DIALYSIS
     Route: 033
     Dates: start: 20101101

REACTIONS (3)
  - BLOOD PARATHYROID HORMONE INCREASED [None]
  - RENAL OSTEODYSTROPHY [None]
  - BLOOD CALCIUM INCREASED [None]
